FAERS Safety Report 8904071 (Version 1)
Quarter: 2012Q4

REPORT INFORMATION
  Report Type: 
  Country: DE (occurrence: DE)
  Receive Date: 20121113
  Receipt Date: 20121113
  Transmission Date: 20130627
  Serious: Yes (Congenital Anomaly)
  Sender: FDA-Public Use
  Company Number: GXKR2012DE003494

PATIENT
  Sex: Male
  Weight: 3.86 kg

DRUGS (4)
  1. PAROXETINE [Suspect]
     Dosage: Maternal dose: varying from 10 mg/d to 20 mg/d
     Route: 064
  2. FOLIC ACID [Concomitant]
     Dosage: Maternal dose: 0.4 mg, BID
     Route: 064
  3. NASIC [Concomitant]
     Route: 064
  4. RENNIE                             /00219301/ [Concomitant]
     Route: 064

REACTIONS (3)
  - Cryptorchism [Unknown]
  - Foot deformity [Unknown]
  - Foetal exposure during pregnancy [Unknown]
